FAERS Safety Report 9778486 (Version 1)
Quarter: 2013Q4

REPORT INFORMATION
  Report Type: Spontaneous
  Country: US (occurrence: None)
  Receive Date: 20131220
  Receipt Date: 20131220
  Transmission Date: 20140711
  Serious: Yes (Other)
  Sender: FDA-Public Use
  Company Number: None

PATIENT
  Age: 19 Year
  Sex: 0
  Weight: 92.99 kg

DRUGS (1)
  1. METHYLPHENIDATE [Suspect]
     Indication: ATTENTION DEFICIT/HYPERACTIVITY DISORDER
     Dosage: 36 MG 2 TABS FOR A TOTAL OF 72 MG DAILY, BY MOUTH
     Route: 048
     Dates: start: 20131108

REACTIONS (4)
  - Decreased appetite [None]
  - Nausea [None]
  - Drug ineffective [None]
  - Product substitution issue [None]
